FAERS Safety Report 5664086-9 (Version None)
Quarter: 2008Q1

REPORT INFORMATION
  Report Type: 
  Country: None (occurrence: None)
  Receive Date: 20080314
  Receipt Date: 20080304
  Transmission Date: 20080703
  Serious: Yes (Hospitalization, Other)
  Sender: FDA-Public Use
  Company Number: US-NOVOPROD-272880

PATIENT
  Age: 61 Year
  Sex: Female

DRUGS (12)
  1. PRANDIN [Suspect]
     Indication: TYPE 2 DIABETES MELLITUS
     Dosage: 1 TAB, TID
     Route: 048
  2. MIRALAX [Suspect]
     Indication: CONSTIPATION
     Dosage: UNK, PRN
     Route: 048
     Dates: start: 20080211, end: 20080215
  3. LASIX [Concomitant]
     Route: 048
  4. PRILOSEC [Concomitant]
     Route: 048
  5. FIORICET [Concomitant]
     Route: 048
  6. TOPROL-XL [Concomitant]
     Route: 048
  7. DIOVAN                             /01319601/ [Concomitant]
     Route: 048
  8. SYNTHROID [Concomitant]
     Route: 048
  9. ALDACTONE [Concomitant]
     Route: 048
  10. REGLAN                             /00041901/ [Concomitant]
     Route: 048
  11. MICRO-K [Concomitant]
     Route: 048
  12. MUCINEX [Concomitant]
     Route: 048

REACTIONS (2)
  - CONSTIPATION [None]
  - TRANSIENT ISCHAEMIC ATTACK [None]
